FAERS Safety Report 16683606 (Version 2)
Quarter: 2020Q3

REPORT INFORMATION
  Report Type: Spontaneous
  Country: US (occurrence: US)
  Receive Date: 20190808
  Receipt Date: 20200817
  Transmission Date: 20201102
  Serious: No
  Sender: FDA-Public Use
  Company Number: US-ALLERGAN-1929148US

PATIENT
  Age: 57 Year
  Sex: Male

DRUGS (2)
  1. ANDRODERM [Suspect]
     Active Substance: TESTOSTERONE
     Indication: ANDROGEN REPLACEMENT THERAPY
     Dosage: 1 PATCH DAILY
     Route: 062
     Dates: start: 20190803
  2. ANDRODERM [Suspect]
     Active Substance: TESTOSTERONE
     Dosage: 1 PATCH DAILY
     Route: 062
     Dates: start: 201905

REACTIONS (3)
  - Application site erythema [Unknown]
  - Therapeutic product effect incomplete [Unknown]
  - Incorrect dose administered [Unknown]
